FAERS Safety Report 18024716 (Version 1)
Quarter: 2020Q3

REPORT INFORMATION
  Report Type: Spontaneous
  Country: US (occurrence: US)
  Receive Date: 20200715
  Receipt Date: 20200715
  Transmission Date: 20201103
  Serious: Yes (Other)
  Sender: FDA-Public Use
  Company Number: None

PATIENT
  Age: 68 Year
  Sex: Female
  Weight: 83.25 kg

DRUGS (2)
  1. VITAMINS CENTRUM [Concomitant]
  2. PEARLESSENCE SANITIZING WITH ALOE [Suspect]
     Active Substance: ALCOHOL
     Indication: PRODUCT USED FOR UNKNOWN INDICATION
     Dates: start: 20200714, end: 20200714

REACTIONS (2)
  - Dry skin [None]
  - Burning sensation [None]

NARRATIVE: CASE EVENT DATE: 20200715
